FAERS Safety Report 14480604 (Version 6)
Quarter: 2021Q4

REPORT INFORMATION
  Report Type: Report from Study
  Country: DE (occurrence: DE)
  Receive Date: 20180202
  Receipt Date: 20211029
  Transmission Date: 20220303
  Serious: Yes (Hospitalization, Other)
  Sender: FDA-Public Use
  Company Number: DE-UCBSA-2017012513

PATIENT
  Sex: Female

DRUGS (17)
  1. METHOTREXATE [Suspect]
     Active Substance: METHOTREXATE
     Indication: Product used for unknown indication
     Dosage: 15 MG, QW, 15 MG, WEEKLY (QW)
  2. METHOTREXATE [Suspect]
     Active Substance: METHOTREXATE
     Dosage: 10 MG, QW, 10 MG, WEEKLY (QW) (START OCT-2017)
  3. METHOTREXATE [Suspect]
     Active Substance: METHOTREXATE
     Dosage: 7.5
  4. CERTOLIZUMAB PEGOL [Suspect]
     Active Substance: CERTOLIZUMAB PEGOL
     Indication: Rheumatoid arthritis
     Dosage: 200 MG, Q2W, EV 2 WEEKS(QOW)
     Route: 058
     Dates: start: 201402, end: 20180103
  5. CERTOLIZUMAB PEGOL [Suspect]
     Active Substance: CERTOLIZUMAB PEGOL
     Dosage: 200 MG, Q2W, EV 2 WEEKS(QOW)
     Route: 058
     Dates: start: 201801, end: 201903
  6. CERTOLIZUMAB PEGOL [Suspect]
     Active Substance: CERTOLIZUMAB PEGOL
     Dosage: 200 MILLIGRAM
     Route: 058
     Dates: start: 201906
  7. CERTOLIZUMAB PEGOL [Suspect]
     Active Substance: CERTOLIZUMAB PEGOL
     Dosage: 200 MILLIGRAM, Q2W
     Route: 058
     Dates: start: 20210406
  8. LERCANIDIPINE [Concomitant]
     Active Substance: LERCANIDIPINE
     Indication: Product used for unknown indication
     Dosage: UNK
  9. PANTOPRAZOLE SODIUM [Concomitant]
     Active Substance: PANTOPRAZOLE SODIUM
     Indication: Product used for unknown indication
     Dosage: UNK
  10. METAMIZOLE [Concomitant]
     Active Substance: METAMIZOLE
     Indication: Product used for unknown indication
     Dosage: UNK
  11. LACTULOSE [Concomitant]
     Active Substance: LACTULOSE
     Indication: Product used for unknown indication
     Dosage: UNK
  12. BISOPROLOL FUMARATE AND HYDROCHLOROTHIAZIDE [Concomitant]
     Active Substance: BISOPROLOL FUMARATE\HYDROCHLOROTHIAZIDE
     Indication: Product used for unknown indication
     Dosage: UNK
  13. NALOXONE HYDROCHLORIDE\OXYCODONE HYDROCHLORIDE [Concomitant]
     Active Substance: NALOXONE HYDROCHLORIDE\OXYCODONE HYDROCHLORIDE
     Indication: Product used for unknown indication
     Dosage: UNK
  14. GABAPENTIN [Concomitant]
     Active Substance: GABAPENTIN
     Indication: Product used for unknown indication
     Dosage: UNK
  15. VIVEO [Concomitant]
     Indication: Product used for unknown indication
     Dosage: UNK
  16. FOLIC ACID [Concomitant]
     Active Substance: FOLIC ACID
     Indication: Product used for unknown indication
     Dosage: UNK
  17. ORENCIA [Concomitant]
     Active Substance: ABATACEPT
     Dosage: 125 MILLIGRAM, QW
     Dates: start: 20210327

REACTIONS (4)
  - Breast neoplasm [Unknown]
  - Weight decreased [Recovered/Resolved]
  - Neoplasm skin [Unknown]
  - Osteoarthritis [Recovered/Resolved]

NARRATIVE: CASE EVENT DATE: 20161215
